FAERS Safety Report 12526866 (Version 1)
Quarter: 2016Q3

REPORT INFORMATION
  Report Type: Spontaneous
  Country: US (occurrence: None)
  Receive Date: 20160701
  Receipt Date: 20160701
  Transmission Date: 20161109
  Serious: Yes (Life-Threatening)
  Sender: FDA-Public Use
  Company Number: None

PATIENT
  Age: 63 Year
  Sex: Female
  Weight: 55 kg

DRUGS (2)
  1. OLANZAPINE, 5 MG [Suspect]
     Active Substance: OLANZAPINE
     Indication: AGITATION
     Route: 048
     Dates: start: 20160608, end: 20160609
  2. HALOPERIDOL. [Suspect]
     Active Substance: HALOPERIDOL
     Route: 030
     Dates: start: 20160607, end: 20160609

REACTIONS (4)
  - Unresponsive to stimuli [None]
  - Neuroleptic malignant syndrome [None]
  - Hypotension [None]
  - Body temperature increased [None]

NARRATIVE: CASE EVENT DATE: 20160610
